FAERS Safety Report 15931229 (Version 3)
Quarter: 2020Q1

REPORT INFORMATION
  Report Type: Spontaneous
  Country: US (occurrence: US)
  Receive Date: 20190207
  Receipt Date: 20200312
  Transmission Date: 20200409
  Serious: Yes (Other)
  Sender: FDA-Public Use
  Company Number: US-ASTRAZENECA-2019SE18580

PATIENT
  Age: 21872 Day
  Sex: Female
  Weight: 85.7 kg

DRUGS (86)
  1. NEXIUM [Suspect]
     Active Substance: ESOMEPRAZOLE MAGNESIUM
     Indication: GASTROOESOPHAGEAL REFLUX DISEASE
     Dosage: GENERIC
     Route: 065
     Dates: start: 20161110, end: 20181225
  2. NEXIUM [Suspect]
     Active Substance: ESOMEPRAZOLE MAGNESIUM
     Indication: GASTROOESOPHAGEAL REFLUX DISEASE
     Dosage: GENERIC
     Route: 065
     Dates: start: 20170504
  3. NEXIUM [Suspect]
     Active Substance: ESOMEPRAZOLE MAGNESIUM
     Indication: GASTROOESOPHAGEAL REFLUX DISEASE
     Route: 048
     Dates: start: 20150305
  4. FLUOCINONIDE. [Concomitant]
     Active Substance: FLUOCINONIDE
     Dates: start: 20110502
  5. DICYCLOMINE [Concomitant]
     Active Substance: DICYCLOMINE HYDROCHLORIDE
  6. DEXAMETHASONE. [Concomitant]
     Active Substance: DEXAMETHASONE
     Route: 048
     Dates: start: 20191115
  7. DEXILANT [Suspect]
     Active Substance: DEXLANSOPRAZOLE
     Indication: GASTROOESOPHAGEAL REFLUX DISEASE
     Route: 065
     Dates: start: 20150818
  8. ASTEPRO [Concomitant]
     Active Substance: AZELASTINE HYDROCHLORIDE
     Dates: start: 20100630
  9. PREDNISONE. [Concomitant]
     Active Substance: PREDNISONE
     Dates: start: 20100420
  10. KETOCONAZOLE. [Concomitant]
     Active Substance: KETOCONAZOLE
     Dates: start: 20171220
  11. NASONEX [Concomitant]
     Active Substance: MOMETASONE FUROATE
  12. OXYCODONE-ACETAMINOPHEN [Concomitant]
     Active Substance: ACETAMINOPHEN\OXYCODONE HYDROCHLORIDE
  13. LYRICA [Concomitant]
     Active Substance: PREGABALIN
  14. NITROFURANTOIN. [Concomitant]
     Active Substance: NITROFURANTOIN
  15. LEVOFLOXACIN. [Concomitant]
     Active Substance: LEVOFLOXACIN
  16. DILTIAZEM. [Concomitant]
     Active Substance: DILTIAZEM
  17. XIFAXAN [Concomitant]
     Active Substance: RIFAXIMIN
  18. TRIAMTERENE-HCTZ [Concomitant]
     Active Substance: HYDROCHLOROTHIAZIDE\TRIAMTERENE
     Route: 065
     Dates: start: 20180824
  19. ALLEGRA-D [Concomitant]
     Active Substance: FEXOFENADINE\PSEUDOEPHEDRINE
     Dates: start: 20101022
  20. XENICAL [Concomitant]
     Active Substance: ORLISTAT
     Dates: start: 20100901
  21. AMOX-CLAV [Concomitant]
     Active Substance: AMOXICILLIN\CLAVULANATE POTASSIUM
     Dates: start: 20100528
  22. CREON [Concomitant]
     Active Substance: PANCRELIPASE AMYLASE\PANCRELIPASE LIPASE\PANCRELIPASE PROTEASE
     Dates: start: 20180110
  23. HYDROCORTISONE-PRAMOXINE [Concomitant]
  24. AMITIZA [Concomitant]
     Active Substance: LUBIPROSTONE
  25. LEVALBUTEROL. [Concomitant]
     Active Substance: LEVALBUTEROL
  26. INDOMETHACIN. [Concomitant]
     Active Substance: INDOMETHACIN
  27. COZAAR [Concomitant]
     Active Substance: LOSARTAN POTASSIUM
  28. ALLOPURINOL. [Concomitant]
     Active Substance: ALLOPURINOL
     Route: 065
     Dates: start: 20180824
  29. FERREX [Concomitant]
     Active Substance: FERRIC POLYSACCHARIDE COMPLEX
     Route: 065
     Dates: start: 20180824
  30. CARVEDILOL. [Concomitant]
     Active Substance: CARVEDILOL
     Route: 048
     Dates: start: 20191115
  31. VASCEPA [Concomitant]
     Active Substance: ICOSAPENT ETHYL
     Route: 048
     Dates: start: 20191115
  32. L-GLUTAMINE [Concomitant]
     Route: 048
     Dates: start: 20191115
  33. NEXIUM [Suspect]
     Active Substance: ESOMEPRAZOLE MAGNESIUM
     Indication: GASTROOESOPHAGEAL REFLUX DISEASE
     Dosage: 40 MG
     Route: 048
     Dates: start: 20180718
  34. BETAMETHASONE. [Concomitant]
     Active Substance: BETAMETHASONE
     Dates: start: 20100528
  35. OSELTAMIVIR [Concomitant]
     Active Substance: OSELTAMIVIR
     Dates: start: 20180215
  36. CELEBREX [Concomitant]
     Active Substance: CELECOXIB
     Dates: start: 20110516
  37. CEFDINIR. [Concomitant]
     Active Substance: CEFDINIR
  38. LEVOCETIRIZINE [Concomitant]
     Active Substance: LEVOCETIRIZINE
  39. LIVALO [Concomitant]
     Active Substance: PITAVASTATIN CALCIUM
  40. SYNTHROID [Concomitant]
     Active Substance: LEVOTHYROXINE SODIUM
  41. GENTAMICIN SULFATE. [Concomitant]
     Active Substance: GENTAMICIN SULFATE
  42. NYSTATIN. [Concomitant]
     Active Substance: NYSTATIN
  43. NIFEDICAL XL [Concomitant]
     Active Substance: NIFEDIPINE
     Route: 048
     Dates: start: 20191115
  44. NEXIUM [Suspect]
     Active Substance: ESOMEPRAZOLE MAGNESIUM
     Indication: GASTROOESOPHAGEAL REFLUX DISEASE
     Route: 048
     Dates: start: 20070209, end: 20161216
  45. NEXIUM [Suspect]
     Active Substance: ESOMEPRAZOLE MAGNESIUM
     Indication: GASTROOESOPHAGEAL REFLUX DISEASE
     Dosage: GENERIC
     Route: 065
     Dates: start: 20160827
  46. HYDROCHLOROTHIAZIDE. [Concomitant]
     Active Substance: HYDROCHLOROTHIAZIDE
     Dates: start: 20110312
  47. FOLGARD [Concomitant]
     Dates: start: 20100505
  48. CYCLOBENZAPRINE. [Concomitant]
     Active Substance: CYCLOBENZAPRINE
  49. NABUMETONE. [Concomitant]
     Active Substance: NABUMETONE
  50. COMBIVENT [Concomitant]
     Active Substance: ALBUTEROL SULFATE\IPRATROPIUM BROMIDE
  51. ALBUTEROL. [Concomitant]
     Active Substance: ALBUTEROL
  52. CLOBETASOL [Concomitant]
     Active Substance: CLOBETASOL
  53. METHOTREXATE. [Concomitant]
     Active Substance: METHOTREXATE
  54. METRONIDAZOLE. [Concomitant]
     Active Substance: METRONIDAZOLE
  55. PRAVASTATIN SODIUM. [Concomitant]
     Active Substance: PRAVASTATIN SODIUM
  56. RAMIPRIL. [Concomitant]
     Active Substance: RAMIPRIL
  57. ACIDOPHILUS [Concomitant]
     Active Substance: LACTOBACILLUS ACIDOPHILUS
  58. GLIPIZIDE. [Concomitant]
     Active Substance: GLIPIZIDE
     Dates: start: 20180119
  59. CLARITHROMYCIN. [Concomitant]
     Active Substance: CLARITHROMYCIN
     Dates: start: 20110609
  60. AVELOX [Concomitant]
     Active Substance: MOXIFLOXACIN HYDROCHLORIDE
  61. DEXAMETHASONE. [Concomitant]
     Active Substance: DEXAMETHASONE
  62. ALDACTONE [Concomitant]
     Active Substance: SPIRONOLACTONE
  63. LASIX [Concomitant]
     Active Substance: FUROSEMIDE
  64. NEXIUM [Suspect]
     Active Substance: ESOMEPRAZOLE MAGNESIUM
     Indication: GASTROOESOPHAGEAL REFLUX DISEASE
     Route: 048
     Dates: start: 20070209, end: 20181225
  65. DEXILANT [Suspect]
     Active Substance: DEXLANSOPRAZOLE
     Indication: GASTROOESOPHAGEAL REFLUX DISEASE
     Route: 065
     Dates: start: 20150727, end: 20151119
  66. TRICOR [Concomitant]
     Active Substance: FENOFIBRATE
     Dates: start: 20100331
  67. CEPHALEXIN. [Concomitant]
     Active Substance: CEPHALEXIN
     Dates: start: 20110516
  68. BEPREVE [Concomitant]
     Active Substance: BEPOTASTINE BESILATE
  69. PROMETHAZINE-CODEINE [Concomitant]
     Active Substance: CODEINE PHOSPHATE\PROMETHAZINE
  70. FOLIC ACID. [Concomitant]
     Active Substance: FOLIC ACID
  71. CHLORHEXIDINE [Concomitant]
     Active Substance: CHLORHEXIDINE
  72. SPIRIVA [Concomitant]
     Active Substance: TIOTROPIUM BROMIDE MONOHYDRATE
  73. HYDRALAZINE [Concomitant]
     Active Substance: HYDRALAZINE HYDROCHLORIDE
  74. CLOTRIMAZOLE. [Concomitant]
     Active Substance: CLOTRIMAZOLE
  75. NASACORT [Concomitant]
     Active Substance: TRIAMCINOLONE ACETONIDE
  76. CRANBERRY. [Concomitant]
     Active Substance: CRANBERRY
  77. SENNA [Concomitant]
     Active Substance: SENNA LEAF\SENNOSIDES\SENNOSIDES A AND B
     Route: 048
     Dates: start: 20191115
  78. PEPCID [Concomitant]
     Active Substance: FAMOTIDINE
     Dates: start: 200612, end: 200702
  79. OMNARIS [Concomitant]
     Active Substance: CICLESONIDE
     Dates: start: 20110416
  80. VITAMIN D2 [Concomitant]
     Active Substance: ERGOCALCIFEROL
     Dates: start: 20100408
  81. SINGULAIR [Concomitant]
     Active Substance: MONTELUKAST SODIUM
     Dates: start: 20110902
  82. FLUTICASONE. [Concomitant]
     Active Substance: FLUTICASONE
  83. MELOXICAM. [Concomitant]
     Active Substance: MELOXICAM
  84. DUREZOL [Concomitant]
     Active Substance: DIFLUPREDNATE
  85. WELCHOL [Concomitant]
     Active Substance: COLESEVELAM HYDROCHLORIDE
  86. MODAFINIL. [Concomitant]
     Active Substance: MODAFINIL

REACTIONS (4)
  - Acute kidney injury [Unknown]
  - End stage renal disease [Unknown]
  - Metabolic acidosis [Unknown]
  - Chronic kidney disease [Not Recovered/Not Resolved]

NARRATIVE: CASE EVENT DATE: 20150223
